FAERS Safety Report 12622266 (Version 1)
Quarter: 2016Q3

REPORT INFORMATION
  Report Type: Spontaneous
  Country: DK (occurrence: DK)
  Receive Date: 20160804
  Receipt Date: 20160804
  Transmission Date: 20161109
  Serious: Yes (Life-Threatening, Hospitalization)
  Sender: FDA-Public Use
  Company Number: DK-TEVA-679874ACC

PATIENT
  Age: 51 Year
  Sex: Male

DRUGS (6)
  1. FORMO EASYHALER [Concomitant]
     Indication: ASTHMA
  2. SPIROCORT TURBUHALER [Concomitant]
     Indication: ASTHMA
  3. METFORMIN [Suspect]
     Active Substance: METFORMIN HYDROCHLORIDE
     Indication: DIABETES MELLITUS
     Dosage: 2 GRAM DAILY; STRENGTH: 500 MG.
     Route: 048
     Dates: end: 20160203
  4. LOSARTAN. [Concomitant]
     Active Substance: LOSARTAN
     Indication: HYPERTENSION
  5. SERTRALINE [Concomitant]
     Active Substance: SERTRALINE HYDROCHLORIDE
     Indication: ANXIETY
  6. CLOZAPIN [Concomitant]
     Active Substance: CLOZAPINE
     Indication: PSYCHOTIC DISORDER

REACTIONS (4)
  - Endotracheal intubation [Recovered/Resolved]
  - Dialysis [Recovered/Resolved]
  - Lactic acidosis [Recovered/Resolved]
  - Altered state of consciousness [Recovered/Resolved]

NARRATIVE: CASE EVENT DATE: 20160203
